FAERS Safety Report 5527141-X (Version None)
Quarter: 2007Q4

REPORT INFORMATION
  Report Type: 
  Country: None (occurrence: None)
  Receive Date: 20071127
  Receipt Date: 20071120
  Transmission Date: 20080405
  Serious: Yes (Other)
  Sender: FDA-Public Use
  Company Number: US-BOEHRINGER INGELHEIM PHARMACEUTICALS, INC.-2007-BP-24950BP

PATIENT
  Sex: Female

DRUGS (1)
  1. SPIRIVA [Suspect]
     Indication: CHRONIC OBSTRUCTIVE PULMONARY DISEASE

REACTIONS (6)
  - DRY MOUTH [None]
  - DYSPHAGIA [None]
  - LUNG NEOPLASM MALIGNANT [None]
  - PHARYNGITIS [None]
  - SINUSITIS [None]
  - URINARY TRACT INFECTION [None]
